FAERS Safety Report 16771994 (Version 3)
Quarter: 2020Q4

REPORT INFORMATION
  Report Type: Spontaneous
  Country: US (occurrence: US)
  Receive Date: 20190904
  Receipt Date: 20201214
  Transmission Date: 20210113
  Serious: Yes (Other)
  Sender: FDA-Public Use
  Company Number: US-GILEAD-2019-0425689

PATIENT
  Sex: Male
  Weight: 87.08 kg

DRUGS (39)
  1. ENALAPRIL [Concomitant]
     Active Substance: ENALAPRIL
  2. FLUTICASONE. [Concomitant]
     Active Substance: FLUTICASONE
  3. ACYCLOVIR ABBOTT VIAL [Concomitant]
  4. CEPHALEXINE [Concomitant]
     Active Substance: CEPHALEXIN
  5. HYDROCODONE/ACETAMINOPHEN [Concomitant]
     Active Substance: ACETAMINOPHEN\HYDROCODONE
  6. TIVICAY [Concomitant]
     Active Substance: DOLUTEGRAVIR SODIUM
  7. ATRIPLA [Suspect]
     Active Substance: EFAVIRENZ\EMTRICITABINE\TENOFOVIR DISOPROXIL FUMARATE
     Indication: HIV INFECTION
     Dosage: UNK
     Route: 048
     Dates: start: 20140806, end: 20160817
  8. PRAVASTATIN. [Concomitant]
     Active Substance: PRAVASTATIN
  9. CYCLOBENZAPRINE. [Concomitant]
     Active Substance: CYCLOBENZAPRINE
  10. FAMCICLOVIR. [Concomitant]
     Active Substance: FAMCICLOVIR
  11. FENOFIBRATE. [Concomitant]
     Active Substance: FENOFIBRATE
  12. ADVIL [IBUPROFEN] [Concomitant]
     Active Substance: IBUPROFEN
  13. MECLIZINE HCL [Concomitant]
     Active Substance: MECLIZINE HYDROCHLORIDE
  14. TYLENOL WITH CODEINE [Concomitant]
     Active Substance: ACETAMINOPHEN\CODEINE PHOSPHATE
  15. VICKS NYQUIL SEVERE COLD + FLU [Concomitant]
  16. VIREAD [Suspect]
     Active Substance: TENOFOVIR DISOPROXIL FUMARATE
     Indication: HIV INFECTION
     Dosage: UNK
     Route: 048
     Dates: start: 20160908, end: 20171215
  17. ASPIRIN (E.C.) [Concomitant]
     Active Substance: ASPIRIN
  18. TRICOR [ADENOSINE] [Concomitant]
     Active Substance: ADENOSINE
  19. CHLORASEPTIC SORE THROAT [BENZOCAINE;MENTHOL] [Concomitant]
     Active Substance: BENZOCAINE\MENTHOL
  20. IRON [Concomitant]
     Active Substance: IRON
  21. DAPSONE. [Concomitant]
     Active Substance: DAPSONE
  22. HYDROXYZINE PAMOATE. [Concomitant]
     Active Substance: HYDROXYZINE PAMOATE
  23. TRAMADOL. [Concomitant]
     Active Substance: TRAMADOL
  24. CARVEDILOL. [Concomitant]
     Active Substance: CARVEDILOL
  25. DOLUTEGRAVIR [Concomitant]
     Active Substance: DOLUTEGRAVIR
  26. TENOFOVIR DISOPROXIL FUMARATE. [Concomitant]
     Active Substance: TENOFOVIR DISOPROXIL FUMARATE
  27. ATRIPLA [Suspect]
     Active Substance: EFAVIRENZ\EMTRICITABINE\TENOFOVIR DISOPROXIL FUMARATE
     Indication: ACQUIRED IMMUNODEFICIENCY SYNDROME
  28. GABAPENTIN. [Concomitant]
     Active Substance: GABAPENTIN
  29. ZIDOVUDINE. [Concomitant]
     Active Substance: ZIDOVUDINE
  30. ALLEGRA-D [Concomitant]
     Active Substance: FEXOFENADINE\PSEUDOEPHEDRINE
  31. FLEXERIL [CEFIXIME] [Concomitant]
     Active Substance: CEFIXIME
  32. VITAMIN B12 [Concomitant]
     Active Substance: CYANOCOBALAMIN
  33. FAMVIR P [Concomitant]
  34. GENVOYA [Concomitant]
     Active Substance: COBICISTAT\ELVITEGRAVIR\EMTRICITABINE\TENOFOVIR ALAFENAMIDE FUMARATE
  35. DILTIAZEM. [Concomitant]
     Active Substance: DILTIAZEM
  36. METOPROLOL. [Concomitant]
     Active Substance: METOPROLOL
  37. CLINDAMYCIN. [Concomitant]
     Active Substance: CLINDAMYCIN
  38. DIGOXIN. [Concomitant]
     Active Substance: DIGOXIN
  39. AMOXICILLIN. [Concomitant]
     Active Substance: AMOXICILLIN

REACTIONS (9)
  - Anhedonia [Not Recovered/Not Resolved]
  - Emotional distress [Not Recovered/Not Resolved]
  - Bone disorder [Unknown]
  - Chronic kidney disease [Not Recovered/Not Resolved]
  - Loss of personal independence in daily activities [Unknown]
  - Economic problem [Not Recovered/Not Resolved]
  - Multiple injuries [Unknown]
  - Pain [Not Recovered/Not Resolved]
  - Anxiety [Not Recovered/Not Resolved]

NARRATIVE: CASE EVENT DATE: 2016
